FAERS Safety Report 21600723 (Version 1)
Quarter: 2022Q4

REPORT INFORMATION
  Report Type: Spontaneous
  Country: CN (occurrence: CN)
  Receive Date: 20221116
  Receipt Date: 20221116
  Transmission Date: 20230113
  Serious: Yes (Other)
  Sender: FDA-Public Use
  Company Number: CN-STRIDES ARCOLAB LIMITED-2022SP015314

PATIENT
  Age: 60 Year
  Sex: Male

DRUGS (4)
  1. HYDROCORTISONE [Suspect]
     Active Substance: HYDROCORTISONE
     Indication: Hypophysitis
     Dosage: UNK (TAPERED)
     Route: 065
  2. HYDROCORTISONE [Suspect]
     Active Substance: HYDROCORTISONE
     Dosage: 10 MILLIGRAM, DAILY (TAPERED AND MAINTAINED)
     Route: 065
  3. METHYLPREDNISOLONE [Suspect]
     Active Substance: METHYLPREDNISOLONE
     Indication: Hypophysitis
     Dosage: 2 MILLIGRAM/KILOGRAM
     Route: 065
  4. CAMRELIZUMAB [Concomitant]
     Active Substance: CAMRELIZUMAB
     Indication: Non-small cell lung cancer
     Dosage: 200 MILLIGRAM, (CYCLICAL) FOR EVERY 2 WEEKS
     Route: 065

REACTIONS (1)
  - Empty sella syndrome [Unknown]
